FAERS Safety Report 7889775-7 (Version None)
Quarter: 2011Q4

REPORT INFORMATION
  Report Type: 
  Country: None (occurrence: None)
  Receive Date: 20111103
  Receipt Date: 20111028
  Transmission Date: 20120403
  Serious: Yes (Hospitalization, Other)
  Sender: FDA-Public Use
  Company Number: US-BAXTER-2011BH034521

PATIENT
  Sex: Female

DRUGS (5)
  1. GAMMAGARD LIQUID [Suspect]
     Route: 065
     Dates: start: 20110801
  2. GAMMAGARD LIQUID [Suspect]
     Route: 065
  3. GAMMAGARD LIQUID [Suspect]
     Indication: PRODUCT USED FOR UNKNOWN INDICATION
     Route: 065
     Dates: start: 20110801
  4. GAMMAGARD LIQUID [Suspect]
     Route: 065
     Dates: start: 20110801
  5. GAMMAGARD LIQUID [Suspect]
     Route: 065
     Dates: start: 20110801

REACTIONS (3)
  - MULTIMORBIDITY [None]
  - CONVULSION [None]
  - RENAL DISORDER [None]
